FAERS Safety Report 4611700-2 (Version None)
Quarter: 2005Q1

REPORT INFORMATION
  Report Type: 
  Country: None (occurrence: None)
  Receive Date: 20050311
  Receipt Date: 20041202
  Transmission Date: 20050727
  Serious: No
  Sender: FDA-Public Use
  Company Number: 2004-BP-13145BP

PATIENT
  Age: 73 Year
  Sex: Female

DRUGS (11)
  1. SPIRIVA [Suspect]
     Indication: CHRONIC OBSTRUCTIVE PULMONARY DISEASE
     Dosage: 18 MCG (18 MCG), IH
     Route: 055
     Dates: start: 20041101
  2. SPIRIVA [Suspect]
     Indication: EMPHYSEMA
     Dosage: 18 MCG (18 MCG), IH
     Route: 055
     Dates: start: 20041101
  3. SPIRIVA [Suspect]
  4. SINGULAIR (MONTELUKAST) [Concomitant]
  5. DIGOXIN [Concomitant]
  6. ZYRTEC [Concomitant]
  7. ATENOLOL [Concomitant]
  8. TRIAMTERENE (TRIAMTERENE) [Concomitant]
  9. PREMARIN [Concomitant]
  10. WARFARIN SODIUM [Concomitant]
  11. FLONASE [Concomitant]

REACTIONS (2)
  - DRY MOUTH [None]
  - DYSPHONIA [None]
